FAERS Safety Report 8063237-9 (Version None)
Quarter: 2012Q1

REPORT INFORMATION
  Report Type: 
  Country: None (occurrence: None)
  Receive Date: 20120118
  Receipt Date: 20120111
  Transmission Date: 20120608
  Serious: Yes (Death, Hospitalization)
  Sender: FDA-Public Use
  Company Number: 2011SP038550

PATIENT
  Age: 28 Year
  Sex: Female
  Weight: 58.9676 kg

DRUGS (2)
  1. NUVARING [Suspect]
     Indication: CONTRACEPTION
     Dosage: 1 DF;QM;VAG
     Route: 067
     Dates: start: 20081101
  2. NUVARING [Suspect]
     Indication: CONTRACEPTION
     Dosage: 1 DF;QM;VAG
     Route: 067
     Dates: start: 20090701, end: 20090801

REACTIONS (16)
  - HAEMATOCRIT DECREASED [None]
  - CARDIOVASCULAR DISORDER [None]
  - HAEMOGLOBIN DECREASED [None]
  - TRICUSPID VALVE INCOMPETENCE [None]
  - VENTRICULAR HYPOKINESIA [None]
  - RIGHT ATRIAL DILATATION [None]
  - BUNDLE BRANCH BLOCK BILATERAL [None]
  - POSTPARTUM DISORDER [None]
  - FALL [None]
  - CARDIAC ARREST [None]
  - DILATATION VENTRICULAR [None]
  - SINUS TACHYCARDIA [None]
  - WHITE BLOOD CELL COUNT INCREASED [None]
  - OBSTETRICAL PULMONARY EMBOLISM [None]
  - UNRESPONSIVE TO STIMULI [None]
  - BLOOD PH DECREASED [None]
